FAERS Safety Report 12243066 (Version 1)
Quarter: 2016Q2

REPORT INFORMATION
  Report Type: Spontaneous
  Country: US (occurrence: US)
  Receive Date: 20160406
  Receipt Date: 20160406
  Transmission Date: 20160815
  Serious: No
  Sender: FDA-Public Use
  Company Number: US-SA-2015SA066396

PATIENT
  Age: 25 Year
  Sex: Male

DRUGS (2)
  1. ALLEGRA-D [Suspect]
     Active Substance: FEXOFENADINE\PSEUDOEPHEDRINE
     Indication: NASAL CONGESTION
     Dosage: TAKEN FROM: EARLY FEB?FREQUENCY AND DAILY DOSE: DAILY WHEN NEEDED
     Route: 048
     Dates: end: 20150509
  2. ALLEGRA-D [Suspect]
     Active Substance: FEXOFENADINE\PSEUDOEPHEDRINE
     Indication: NASAL CONGESTION
     Dosage: TAKEN FROM: EARLY FEB?FREQUENCY AND DAILY DOSE: DAILY WHEN NEEDED
     Route: 048
     Dates: end: 20150509

REACTIONS (1)
  - Drug level increased [Unknown]
